FAERS Safety Report 23176935 (Version 1)
Quarter: 2023Q4

REPORT INFORMATION
  Report Type: Spontaneous
  Country: US (occurrence: US)
  Receive Date: 20231113
  Receipt Date: 20231113
  Transmission Date: 20240110
  Serious: No
  Sender: FDA-Public Use
  Company Number: US-AMGEN-USASP2023202594

PATIENT
  Sex: Female

DRUGS (5)
  1. PROLIA [Suspect]
     Active Substance: DENOSUMAB
     Indication: Osteopenia
     Dosage: 60 MILLIGRAM, Q6MO
     Route: 058
     Dates: start: 20231030
  2. PROLIA [Suspect]
     Active Substance: DENOSUMAB
     Indication: Off label use
  3. CALCIUM [Concomitant]
     Active Substance: CALCIUM
     Indication: Product used for unknown indication
     Dosage: UNK
     Route: 058
  4. ESTRADIOL [Concomitant]
     Active Substance: ESTRADIOL
     Indication: Product used for unknown indication
     Dosage: 0.25 MILLIGRAM, QD
     Route: 058
  5. LIPITOR [Concomitant]
     Active Substance: ATORVASTATIN CALCIUM
     Indication: Blood cholesterol abnormal
     Dosage: 10 MILLIGRAM, QD
     Route: 058

REACTIONS (2)
  - Off label use [Unknown]
  - Paraesthesia [Unknown]
